FAERS Safety Report 13359569 (Version 2)
Quarter: 2017Q2

REPORT INFORMATION
  Report Type: Spontaneous
  Country: US (occurrence: US)
  Receive Date: 20170322
  Receipt Date: 20170404
  Transmission Date: 20170830
  Serious: Yes (Other)
  Sender: FDA-Public Use
  Company Number: US-PFIZER INC-2017120433

PATIENT
  Age: 30 Year
  Sex: Female

DRUGS (1)
  1. EPINEPHRINE. [Suspect]
     Active Substance: EPINEPHRINE
     Dosage: 0.3 ML, SINGLE OF 1: 1000 (INJECTED INTO THE THUMB)

REACTIONS (7)
  - Injection site pallor [Recovered/Resolved]
  - Heart rate increased [Recovered/Resolved]
  - Accidental exposure to product [Recovered/Resolved]
  - Injection site ischaemia [Recovered/Resolved]
  - Injection site hypoaesthesia [Recovered/Resolved]
  - Injection site anaesthesia [Recovered/Resolved]
  - Tremor [Recovered/Resolved]
